FAERS Safety Report 22280239 (Version 1)
Quarter: 2023Q2

REPORT INFORMATION
  Report Type: Spontaneous
  Country: US (occurrence: US)
  Receive Date: 20230503
  Receipt Date: 20230503
  Transmission Date: 20230721
  Serious: No
  Sender: FDA-Public Use
  Company Number: US-FreseniusKabi-FK202305157

PATIENT
  Age: 10 Year
  Sex: Female
  Weight: 53 kg

DRUGS (2)
  1. DIPRIVAN [Suspect]
     Active Substance: PROPOFOL
     Indication: Sedation
     Dosage: REQUIRED PROPOFOL 275 MCG/KG/H INFUSION AND ALSO RECEIVED 140 MG BOLUS
     Route: 042
     Dates: start: 20230414
  2. DIPRIVAN [Suspect]
     Active Substance: PROPOFOL
     Dosage: REQUIRED PROPOFOL 275 MCG/KG/H INFUSION AND ALSO RECEIVED 140 MG BOLUS
     Route: 040
     Dates: start: 20230414

REACTIONS (1)
  - Therapeutic product effect decreased [Unknown]
